FAERS Safety Report 21324189 (Version 1)
Quarter: 2022Q3

REPORT INFORMATION
  Report Type: Spontaneous
  Country: US (occurrence: None)
  Receive Date: 20220912
  Receipt Date: 20220912
  Transmission Date: 20221027
  Serious: Yes (Death)
  Sender: FDA-Public Use
  Company Number: None

PATIENT
  Age: 64 Year
  Sex: Female
  Weight: 77.11 kg

DRUGS (17)
  1. CAPECITABINE [Suspect]
     Active Substance: CAPECITABINE
     Indication: Rectosigmoid cancer
     Dosage: FREQUENCY : TWICE A DAY;?
     Route: 048
     Dates: start: 202003, end: 20220909
  2. AMLODIPINE [Concomitant]
  3. ATORVASTATIN [Concomitant]
  4. BASAGLAR KWIKPEN [Concomitant]
     Active Substance: INSULIN GLARGINE
  5. DULOXETINE [Concomitant]
     Active Substance: DULOXETINE
  6. FUROSEMIDE [Concomitant]
  7. KLOR-CON [Concomitant]
     Active Substance: POTASSIUM CHLORIDE
  8. LIDOCAINE\PRILOCAINE [Concomitant]
     Active Substance: LIDOCAINE\PRILOCAINE
  9. LOPERAMIDE [Concomitant]
     Active Substance: LOPERAMIDE
  10. LOVENOX [Concomitant]
     Active Substance: ENOXAPARIN SODIUM
  11. METFORMIN [Concomitant]
     Active Substance: METFORMIN HYDROCHLORIDE
  12. MULTIVITAMIN [Concomitant]
  13. MUPIROCIN [Concomitant]
     Active Substance: MUPIROCIN
  14. NOVOLOG [Concomitant]
     Active Substance: INSULIN ASPART
  15. NYSTATIN [Concomitant]
  16. PROCHLORPERAZINE [Concomitant]
  17. VENTOLIN [Concomitant]

REACTIONS (1)
  - Death [None]
